FAERS Safety Report 14413279 (Version 1)
Quarter: 2018Q1

REPORT INFORMATION
  Report Type: Spontaneous
  Country: PE (occurrence: PE)
  Receive Date: 20180119
  Receipt Date: 20180119
  Transmission Date: 20180509
  Serious: Yes (Disabling)
  Sender: FDA-Public Use
  Company Number: PE-GLAXOSMITHKLINE-PE2018GSK008562

PATIENT
  Age: 6 Year
  Sex: Male

DRUGS (1)
  1. SERETIDE [Suspect]
     Active Substance: FLUTICASONE PROPIONATE\SALMETEROL XINAFOATE
     Indication: PRODUCT USED FOR UNKNOWN INDICATION
     Dosage: 50 UG, BID
     Route: 055
     Dates: start: 20171109, end: 20171111

REACTIONS (6)
  - Cough [Unknown]
  - Hypersensitivity [Unknown]
  - Intentional product misuse [Unknown]
  - Accident [Unknown]
  - Sneezing [Unknown]
  - Forearm fracture [Recovered/Resolved]

NARRATIVE: CASE EVENT DATE: 20171111
